FAERS Safety Report 12506044 (Version 1)
Quarter: 2016Q2

REPORT INFORMATION
  Report Type: Spontaneous
  Country: FR (occurrence: FR)
  Receive Date: 20160628
  Receipt Date: 20160628
  Transmission Date: 20160815
  Serious: Yes (Hospitalization)
  Sender: FDA-Public Use
  Company Number: FR-TEVA-669448ISR

PATIENT
  Age: 73 Year
  Sex: Male

DRUGS (6)
  1. IFOSFAMIDE EG 40 MG/ML [Suspect]
     Active Substance: IFOSFAMIDE
     Indication: LIPOSARCOMA
     Route: 042
     Dates: start: 20160603, end: 20160603
  2. CEFAZOLIN MYLAN [Suspect]
     Active Substance: CEFAZOLIN
     Dosage: FORM: POWDER FOR SOLUTION FOR INJECTION (IM-IV)
     Route: 042
  3. TOPALGIC 100 MG/2 ML [Suspect]
     Active Substance: TRAMADOL
     Dosage: ONGOING
     Route: 042
     Dates: start: 20160531
  4. DOXORUBICINE TEVA [Suspect]
     Active Substance: DOXORUBICIN
     Indication: LIPOSARCOMA
     Route: 042
     Dates: start: 20160603, end: 20160603
  5. LOVENOX [Concomitant]
     Active Substance: ENOXAPARIN SODIUM
     Dates: start: 20160602
  6. OXYNORMORO [Concomitant]
     Active Substance: OXYCODONE
     Dates: start: 20160529

REACTIONS (1)
  - Epilepsy [Recovered/Resolved]

NARRATIVE: CASE EVENT DATE: 20160603
